FAERS Safety Report 9068915 (Version 1)
Quarter: 2013Q1

REPORT INFORMATION
  Report Type: Spontaneous
  Country: FR (occurrence: None)
  Receive Date: 20130122
  Receipt Date: 20130122
  Transmission Date: 20140127
  Serious: Yes (Hospitalization)
  Sender: FDA-Public Use
  Company Number: DSM-2013-00070

PATIENT
  Age: 83 Year
  Sex: Male

DRUGS (12)
  1. ALTEIS (OLMESARTAN MEDOXOMIL) (TABLET) (OLMESARTAN MEDOXOMIL) [Suspect]
     Indication: HYPERTENSION
     Route: 048
     Dates: end: 201010
  2. SERMION (NICERGOLINE)(NICERGOLINE) [Concomitant]
  3. ALLOPURINOL (ALLOPURINOL)(ALLOPURINOL) [Concomitant]
  4. LANSOPRAZOLE (LANSOPRAZOLE)(LANSOPRAZOLE) [Concomitant]
  5. TEMERIT (NEBIVOLOL)(NEBIVOLOL) [Concomitant]
  6. CHONDROSULF (CHONDROITIN SULFATE SODIUM)(CHONDROITIN SULFATE SODIUM) [Concomitant]
  7. NORSET (MIRTAZAPINE)(MIRTAZAPINE) [Concomitant]
  8. PLAVIX (CLOPIDOGREL)(CLOPIDOGREL) [Concomitant]
  9. KARDEGIC (ACETYLSALICYLATE LYSINE)(ACETYLSALICYLATE LYSINE) [Concomitant]
  10. CHIBRO-PROSCAR (FINASTERIDE)(FINASTERIDE) [Concomitant]
  11. NEURONTIN  (GABAPENTIN) (GABAPENTIN) [Concomitant]
  12. TAHOR (ATORVASTATIN CALCIUM)(ATORVASTATIN CALCIUM) [Concomitant]

REACTIONS (6)
  - Weight decreased [None]
  - Dehydration [None]
  - Renal failure [None]
  - Ileitis [None]
  - Diarrhoea [None]
  - Intestinal villi atrophy [None]
